FAERS Safety Report 12359174 (Version 2)
Quarter: 2016Q2

REPORT INFORMATION
  Report Type: Report from Study
  Country: BR (occurrence: BR)
  Receive Date: 20160512
  Receipt Date: 20160524
  Transmission Date: 20160815
  Serious: Yes (Hospitalization)
  Sender: FDA-Public Use
  Company Number: PHHY2016BR063584

PATIENT
  Sex: Male
  Weight: 68 kg

DRUGS (2)
  1. HIDROXIUREA [Concomitant]
     Active Substance: HYDROXYUREA
     Indication: SICKLE CELL ANAEMIA
     Dosage: 500 MG, QD
     Route: 065
  2. EXJADE [Suspect]
     Active Substance: DEFERASIROX
     Indication: SICKLE CELL ANAEMIA
     Dosage: 750 MG (10 MG/KG, 1 DF OF 500 MG AND 1 DF OF 250 MG), QD
     Route: 048

REACTIONS (6)
  - Dysuria [Unknown]
  - Sickle cell anaemia with crisis [Unknown]
  - Dyspnoea [Unknown]
  - Abdominal pain [Unknown]
  - Pain [Unknown]
  - Blood iron increased [Unknown]
